FAERS Safety Report 5527914-3 (Version None)
Quarter: 2007Q4

REPORT INFORMATION
  Report Type: 
  Country: None (occurrence: None)
  Receive Date: 20071126
  Receipt Date: 20071126
  Transmission Date: 20080405
  Serious: Yes (Other)
  Sender: FDA-Public Use
  Company Number: None

PATIENT
  Age: 4 Year
  Sex: Female
  Weight: 17.2367 kg

DRUGS (1)
  1. TAMIFLU [Suspect]
     Indication: EAR INFECTION
     Dosage: 1/2 TEASPOON BY MOUTH  TWICE DAILY  PO
     Route: 048
     Dates: start: 20071119, end: 20071123

REACTIONS (1)
  - DELIRIUM [None]
